FAERS Safety Report 8851768 (Version 2)
Quarter: 2013Q2

REPORT INFORMATION
  Report Type: Spontaneous
  Country: US (occurrence: None)
  Receive Date: 20120426
  Receipt Date: 20120703
  Transmission Date: 20140414
  Serious: No
  Sender: FDA-Public Use
  Company Number: PHEH2011US011291

PATIENT
  Age: 58 Year
  Sex: Female
  Weight: 47.6 kg

DRUGS (1)
  1. GILENYA [Suspect]
     Indication: MULTIPLE SCLEROSIS
     Route: 048
     Dates: start: 20110401, end: 201202

REACTIONS (2)
  - Abdominal pain [None]
  - Abdominal pain upper [None]
